FAERS Safety Report 13940120 (Version 1)
Quarter: 2017Q3

REPORT INFORMATION
  Report Type: Spontaneous
  Country: CZ (occurrence: CZ)
  Receive Date: 20170906
  Receipt Date: 20170906
  Transmission Date: 20171127
  Serious: Yes (Other)
  Sender: FDA-Public Use
  Company Number: CZ-CELGENEUS-CZE-20170807452

PATIENT
  Age: 68 Year
  Sex: Female

DRUGS (11)
  1. NEURONTIN [Concomitant]
     Active Substance: GABAPENTIN
     Indication: PRODUCT USED FOR UNKNOWN INDICATION
     Dosage: 300 MG
     Route: 048
  2. OXYCONTIN [Concomitant]
     Active Substance: OXYCODONE HYDROCHLORIDE
     Indication: PRODUCT USED FOR UNKNOWN INDICATION
     Dosage: 20 MILLIGRAM
     Route: 048
  3. VALSACOR [Concomitant]
     Active Substance: VALSARTAN
     Indication: PRODUCT USED FOR UNKNOWN INDICATION
     Dosage: 80 MILLIGRAM
     Route: 048
  4. BONEFOS [Concomitant]
     Active Substance: CLODRONATE DISODIUM
     Indication: PRODUCT USED FOR UNKNOWN INDICATION
     Route: 065
  5. NOVALGIN [Concomitant]
     Active Substance: METAMIZOLE SODIUM
     Indication: PAIN
     Route: 048
  6. REVLIMID [Suspect]
     Active Substance: LENALIDOMIDE
     Indication: PLASMA CELL MYELOMA
     Dosage: 10 MILLIGRAM
     Route: 065
     Dates: start: 20130902, end: 201601
  7. CISPLATIN. [Concomitant]
     Active Substance: CISPLATIN
     Indication: PLASMA CELL MYELOMA
     Route: 065
  8. VINBLASTINE [Concomitant]
     Active Substance: VINBLASTINE
     Indication: PLASMA CELL MYELOMA
     Route: 065
  9. DACARBAZINE. [Concomitant]
     Active Substance: DACARBAZINE
     Indication: PLASMA CELL MYELOMA
     Route: 065
  10. HELICID [Concomitant]
     Active Substance: OMEPRAZOLE
     Indication: PRODUCT USED FOR UNKNOWN INDICATION
     Dosage: 20 MG
     Route: 048
  11. MAGNOSOLV [Concomitant]
     Indication: PRODUCT USED FOR UNKNOWN INDICATION
     Route: 065

REACTIONS (1)
  - Colorectal cancer [Unknown]

NARRATIVE: CASE EVENT DATE: 20170823
